FAERS Safety Report 16087383 (Version 2)
Quarter: 2024Q4

REPORT INFORMATION
  Report Type: Spontaneous
  Country: FR (occurrence: FR)
  Receive Date: 20190319
  Receipt Date: 20241022
  Transmission Date: 20250114
  Serious: Yes (Other)
  Sender: TERSERA THERAPEUTICS
  Company Number: FR-ASTRAZENECA-2016SE72758

PATIENT

DRUGS (23)
  1. GOSERELIN [Interacting]
     Active Substance: GOSERELIN
     Indication: Prostate cancer
     Dosage: 10.8 MILLIGRAM, UNK, FREQUENCY: Q3MO
     Route: 058
     Dates: end: 2015
  2. ZOLADEX [Interacting]
     Active Substance: GOSERELIN ACETATE
     Indication: Prostate cancer
     Dosage: UNK
     Route: 065
  3. CASODEX [Interacting]
     Active Substance: BICALUTAMIDE
     Indication: Prostate cancer
     Dosage: 50 MILLIGRAM, QD
     Route: 048
     Dates: end: 2015
  4. CLOZAPINE [Interacting]
     Active Substance: CLOZAPINE
     Indication: Antipsychotic therapy
     Dosage: UNK
     Route: 048
  5. CLOZAPINE [Interacting]
     Active Substance: CLOZAPINE
     Dosage: UNK
     Route: 048
  6. CLOZAPINE [Interacting]
     Active Substance: CLOZAPINE
     Dosage: GRADUAL INCREASE OF DOSAGE
     Route: 065
  7. CLOZAPINE [Interacting]
     Active Substance: CLOZAPINE
     Dosage: 25 MILLIGRAM, QD
     Route: 065
  8. TRAZODONE HYDROCHLORIDE [Interacting]
     Active Substance: TRAZODONE HYDROCHLORIDE
     Indication: Product used for unknown indication
     Dosage: UNK
     Route: 065
  9. TRAZODONE HYDROCHLORIDE [Interacting]
     Active Substance: TRAZODONE HYDROCHLORIDE
     Dosage: UNK
     Route: 065
  10. RISPERIDONE [Concomitant]
     Active Substance: RISPERIDONE
     Indication: Product used for unknown indication
     Dosage: UNK
     Route: 048
  11. ASPIRIN [Concomitant]
     Active Substance: ASPIRIN
     Indication: Product used for unknown indication
     Dosage: UNK
     Route: 048
  12. ALLOPURINOL SODIUM [Concomitant]
     Active Substance: ALLOPURINOL SODIUM
     Indication: Product used for unknown indication
     Dosage: UNK
     Route: 048
  13. ALLOPURINOL SODIUM [Concomitant]
     Active Substance: ALLOPURINOL SODIUM
     Dosage: UNK
     Route: 065
  14. ATORVASTATIN [Concomitant]
     Active Substance: ATORVASTATIN
     Indication: Product used for unknown indication
     Dosage: UNK
     Route: 048
  15. BISOPROLOL [Concomitant]
     Active Substance: BISOPROLOL\BISOPROLOL FUMARATE
     Indication: Product used for unknown indication
     Dosage: UNK
     Route: 048
  16. BISOPROLOL [Concomitant]
     Active Substance: BISOPROLOL\BISOPROLOL FUMARATE
     Dosage: UNK
     Route: 065
  17. TRAMADOL [Concomitant]
     Active Substance: TRAMADOL
     Indication: Product used for unknown indication
     Dosage: UNK
     Route: 048
  18. TRAMADOL [Concomitant]
     Active Substance: TRAMADOL
     Dosage: UNK
     Route: 065
  19. MEMANTINE HYDROCHLORIDE [Concomitant]
     Active Substance: MEMANTINE HYDROCHLORIDE
     Indication: Product used for unknown indication
     Dosage: UNK
     Route: 048
  20. TIAPRIDE [Concomitant]
     Active Substance: TIAPRIDE
     Indication: Product used for unknown indication
     Dosage: UNK
     Route: 048
  21. OXAZEPAM [Concomitant]
     Active Substance: OXAZEPAM
     Indication: Anxiety
     Dosage: UNK
     Route: 048
  22. ALPRAZOLAM [Concomitant]
     Active Substance: ALPRAZOLAM
     Indication: Anxiety
     Dosage: UNK
     Route: 048
  23. ASPIRIN [Concomitant]
     Active Substance: ASPIRIN
     Indication: Product used for unknown indication
     Dosage: UNK
     Route: 065

REACTIONS (2)
  - Electrocardiogram QT prolonged [Recovered/Resolved]
  - Drug interaction [Recovered/Resolved]

NARRATIVE: CASE EVENT DATE: 20150803
